FAERS Safety Report 15538034 (Version 1)
Quarter: 2018Q4

REPORT INFORMATION
  Report Type: Spontaneous
  Country: US (occurrence: US)
  Receive Date: 20181022
  Receipt Date: 20181022
  Transmission Date: 20190205
  Serious: Yes (Hospitalization)
  Sender: FDA-Public Use
  Company Number: US-AVADEL LEGACY PHARMACEUTICALS, LLC-2018AVA00417

PATIENT
  Sex: Female
  Weight: 102.04 kg

DRUGS (2)
  1. NOCTIVA [Suspect]
     Active Substance: DESMOPRESSIN ACETATE
     Indication: HYPERTONIC BLADDER
  2. NOCTIVA [Suspect]
     Active Substance: DESMOPRESSIN ACETATE
     Indication: NOCTURIA
     Dosage: 0.83 ?G, 1X/DAY BEFORE BEDTIME
     Route: 045
     Dates: start: 20180829, end: 20181005

REACTIONS (5)
  - Renal disorder [Unknown]
  - Dehydration [Recovering/Resolving]
  - Product complaint [Not Recovered/Not Resolved]
  - Hyponatraemia [Unknown]
  - Pain [Unknown]

NARRATIVE: CASE EVENT DATE: 2018
